FAERS Safety Report 12238354 (Version 1)
Quarter: 2016Q2

REPORT INFORMATION
  Report Type: Spontaneous
  Country: US (occurrence: None)
  Receive Date: 20160404
  Receipt Date: 20160404
  Transmission Date: 20160815
  Serious: No
  Sender: FDA-Public Use
  Company Number: None

PATIENT
  Age: 47 Year
  Sex: Female

DRUGS (4)
  1. HYDROMORPHON [Concomitant]
     Active Substance: HYDROMORPHONE
  2. EXEMESTANE. [Concomitant]
     Active Substance: EXEMESTANE
  3. AFINITOR [Suspect]
     Active Substance: EVEROLIMUS
     Indication: RENAL CANCER
     Dosage: 10MG QD PL
     Dates: start: 20150902, end: 20160331
  4. OXYCONTIN [Concomitant]
     Active Substance: OXYCODONE HYDROCHLORIDE

REACTIONS (3)
  - Hospice care [None]
  - Therapy cessation [None]
  - Treatment noncompliance [None]

NARRATIVE: CASE EVENT DATE: 20160331
